FAERS Safety Report 14122526 (Version 1)
Quarter: 2017Q4

REPORT INFORMATION
  Report Type: Report from Study
  Country: US (occurrence: US)
  Receive Date: 20171024
  Receipt Date: 20171024
  Transmission Date: 20180321
  Serious: Yes (Hospitalization, Other)
  Sender: FDA-Public Use
  Company Number: US-VIFOR (INTERNATIONAL) INC.-VIT-2017-08764

PATIENT
  Sex: Male
  Weight: 56 kg

DRUGS (20)
  1. VELTASSA [Suspect]
     Active Substance: PATIROMER
     Route: 048
     Dates: start: 20170215
  2. BENAZEPRIL [Concomitant]
     Active Substance: BENAZEPRIL HYDROCHLORIDE
  3. TRAVATAN [Concomitant]
     Active Substance: TRAVOPROST
  4. COLACE [Concomitant]
     Active Substance: DOCUSATE SODIUM
  5. DIALYVITE [Concomitant]
     Active Substance: ASCORBIC ACID\BIOTIN\CALCIUM PANTOTHENATE\COBALAMIN\FOLIC ACID\NIACINAMIDE\PYRIDOXINE HYDROCHLORIDE\RIBOFLAVIN\THIAMINE MONONITRATE
  6. VELTASSA [Suspect]
     Active Substance: PATIROMER
     Indication: HYPERKALAEMIA
     Route: 048
     Dates: start: 20170211
  7. ALLOPURINOL. [Concomitant]
     Active Substance: ALLOPURINOL
  8. LACTULOSE. [Concomitant]
     Active Substance: LACTULOSE
  9. PHOSLO [Concomitant]
     Active Substance: CALCIUM ACETATE
  10. SENSIPAR [Concomitant]
     Active Substance: CINACALCET HYDROCHLORIDE
  11. PLAVIX [Concomitant]
     Active Substance: CLOPIDOGREL BISULFATE
  12. LANTUS [Concomitant]
     Active Substance: INSULIN GLARGINE
  13. ZOCOR [Concomitant]
     Active Substance: SIMVASTATIN
  14. TYLENOL [Concomitant]
     Active Substance: ACETAMINOPHEN
  15. COREG [Concomitant]
     Active Substance: CARVEDILOL
  16. METOCLOPRAMIDE. [Concomitant]
     Active Substance: METOCLOPRAMIDE
  17. PARACETAMOL [Concomitant]
     Active Substance: ACETAMINOPHEN
  18. GLYCERYL TRINITRATE [Concomitant]
     Active Substance: NITROGLYCERIN
  19. VELTASSA [Suspect]
     Active Substance: PATIROMER
     Route: 048
     Dates: start: 20170215
  20. CYCLOBENZAPRINE. [Concomitant]
     Active Substance: CYCLOBENZAPRINE

REACTIONS (6)
  - Off label use [Unknown]
  - Localised infection [Recovering/Resolving]
  - Oedema peripheral [Recovering/Resolving]
  - Dialysis [Recovering/Resolving]
  - Skin disorder [Recovering/Resolving]
  - Vascular pseudoaneurysm [Recovering/Resolving]

NARRATIVE: CASE EVENT DATE: 2017
